FAERS Safety Report 5476834-1 (Version None)
Quarter: 2007Q4

REPORT INFORMATION
  Report Type: 
  Country: None (occurrence: None)
  Receive Date: 20071003
  Receipt Date: 20071003
  Transmission Date: 20080405
  Serious: Yes (Life-Threatening)
  Sender: FDA-Public Use
  Company Number: None

PATIENT
  Age: 32 Year
  Sex: Female
  Weight: 84.4824 kg

DRUGS (2)
  1. AVASTIN [Suspect]
     Indication: GLIOBLASTOMA MULTIFORME
     Dosage: 846 MG  EVERY 2 WEEKS  IV
     Route: 042
     Dates: start: 20070831
  2. AVASTIN [Suspect]

REACTIONS (1)
  - CEREBRAL HAEMORRHAGE [None]
